FAERS Safety Report 6607423-0 (Version None)
Quarter: 2010Q1

REPORT INFORMATION
  Report Type: 
  Country: None (occurrence: None)
  Receive Date: 20100301
  Receipt Date: 20100215
  Transmission Date: 20100710
  Serious: Yes (Hospitalization)
  Sender: FDA-Public Use
  Company Number: GB-ELI_LILLY_AND_COMPANY-GB201002003833

PATIENT
  Sex: Female
  Weight: 80 kg

DRUGS (9)
  1. GEMCITABINE HCL [Suspect]
     Indication: DIFFUSE LARGE B-CELL LYMPHOMA
     Dosage: 1860 MG, DAYS 1 + 8 EVERY 21 DAYS
     Route: 042
     Dates: start: 20090417
  2. CYCLOPHOSPHAMIDE [Suspect]
     Indication: DIFFUSE LARGE B-CELL LYMPHOMA
     Dosage: 1390 MG, DAYS 1 + 8 EVERY 21 DAYS
     Route: 042
     Dates: start: 20090417
  3. VINCRISTINE SULFATE [Suspect]
     Indication: DIFFUSE LARGE B-CELL LYMPHOMA
     Dosage: 2 MG, DAYS 1 + 8 EVERY 21 DAYS
     Route: 042
     Dates: start: 20090417
  4. RITUXIMAB [Suspect]
     Indication: DIFFUSE LARGE B-CELL LYMPHOMA
     Dosage: 700 MG, DAYS 1 + 8 EVERY 21 DAYS
     Route: 042
     Dates: start: 20090417
  5. OTHER PHARMA COMPANY INV DRUG [Suspect]
     Indication: DIFFUSE LARGE B-CELL LYMPHOMA
     Dosage: 100 MG, DAILY (1/D)
     Route: 048
     Dates: start: 20090417
  6. PEGFILGRASTIM [Suspect]
     Indication: DIFFUSE LARGE B-CELL LYMPHOMA
     Dosage: 6 MG, DAYS 1 + 8 EVERY 21 DAYS
     Route: 058
     Dates: start: 20090417
  7. METFORMIN HYDROCHLORIDE [Concomitant]
     Indication: DIABETES MELLITUS
     Dosage: 500 MG, 3/D
     Route: 048
  8. HUMALOG [Concomitant]
     Indication: DIABETES MELLITUS
     Dosage: 26 IU, DAILY (1/D)
     Route: 058
  9. ASPIRIN [Concomitant]
     Dosage: 75 MG, DAILY (1/D)
     Route: 048

REACTIONS (1)
  - NEUTROPENIC SEPSIS [None]
